FAERS Safety Report 5671691 (Version 6)
Quarter: 2025Q2

REPORT INFORMATION
  Report Type: Spontaneous
  Country: GR (occurrence: GR)
  Receive Date: 20041112
  Receipt Date: 20250515
  Transmission Date: 20250717
  Serious: Yes (Hospitalization, Other)
  Sender: NOVARTIS
  Company Number: PHBS2004GR14917

PATIENT
  Age: 33 Year
  Sex: Female

DRUGS (6)
  1. ZOMETA [Suspect]
     Active Substance: ZOLEDRONIC ACID
     Indication: Breast cancer
     Route: 042
  2. TAMOXIFEN [Suspect]
     Active Substance: TAMOXIFEN
     Indication: Breast cancer
     Dosage: 20 MG, QD
     Route: 048
  3. FLUOROURACIL [Suspect]
     Active Substance: FLUOROURACIL
     Indication: Breast cancer
     Dosage: 600 MG/M2, Q3W (EVERY 3 WEEKS)
     Route: 065
  4. EPIRUBICIN [Suspect]
     Active Substance: EPIRUBICIN
     Indication: Breast cancer
     Dosage: 90 MG/M2, Q3W (EVERY 3 WEEKS)
     Route: 065
  5. CYCLOPHOSPHAMIDE [Suspect]
     Active Substance: CYCLOPHOSPHAMIDE
     Indication: Breast cancer
     Dosage: 600 MG/M2, Q3W (EVERY 3 WEEKS)
     Route: 065
  6. CYCLOPHOSPHAMIDE [Suspect]
     Active Substance: CYCLOPHOSPHAMIDE
     Indication: Breast cancer metastatic

REACTIONS (6)
  - Premature labour [Unknown]
  - Vomiting [Unknown]
  - Nausea [Unknown]
  - Anaemia [Unknown]
  - Maternal exposure during pregnancy [Unknown]
  - Normal newborn [Unknown]
